FAERS Safety Report 4316188-7 (Version None)
Quarter: 2004Q1

REPORT INFORMATION
  Report Type: 
  Country: None (occurrence: None)
  Receive Date: 20040312
  Receipt Date: 20030630
  Transmission Date: 20041129
  Serious: Yes (Hospitalization)
  Sender: FDA-Public Use
  Company Number: US-GLAXOSMITHKLINE-A0415892A

PATIENT
  Age: 52 Year
  Sex: Female

DRUGS (7)
  1. LOTRONEX [Suspect]
     Indication: DIARRHOEA
     Dosage: 1MG TWICE PER DAY
     Route: 048
     Dates: start: 20000201, end: 20000801
  2. KLONOPIN [Concomitant]
  3. SERZONE [Concomitant]
  4. IMODIUM [Concomitant]
  5. MILK OF MAGNESIA TAB [Concomitant]
  6. PEPTO BISMOL [Concomitant]
  7. TRAZODONE HCL [Concomitant]

REACTIONS (22)
  - ABDOMINAL ABSCESS [None]
  - ABDOMINAL PAIN [None]
  - BACK PAIN [None]
  - COLONIC STENOSIS [None]
  - CONDITION AGGRAVATED [None]
  - CONSTIPATION [None]
  - DEPRESSION [None]
  - DIVERTICULUM [None]
  - ENTEROVESICAL FISTULA [None]
  - FAECALOMA [None]
  - FEMALE GENITAL-DIGESTIVE TRACT FISTULA [None]
  - FIBROSIS [None]
  - HAEMATURIA [None]
  - HAEMORRHOIDS [None]
  - INFLAMMATION [None]
  - INTESTINAL RESECTION [None]
  - MUCOUS MEMBRANE DISORDER [None]
  - OVERDOSE [None]
  - PYREXIA [None]
  - SUPRAPUBIC PAIN [None]
  - VAGINAL DISORDER [None]
  - VOMITING [None]
